FAERS Safety Report 22253210 (Version 2)
Quarter: 2023Q2

REPORT INFORMATION
  Report Type: Spontaneous
  Country: US (occurrence: US)
  Receive Date: 20230426
  Receipt Date: 20230627
  Transmission Date: 20230721
  Serious: Yes (Hospitalization, Other)
  Sender: FDA-Public Use
  Company Number: US-BRISTOL-MYERS SQUIBB COMPANY-2023-055862

PATIENT
  Age: 64 Year
  Sex: Male

DRUGS (1)
  1. LENALIDOMIDE [Suspect]
     Active Substance: LENALIDOMIDE
     Indication: Plasma cell myeloma
     Route: 048
     Dates: start: 20220311

REACTIONS (6)
  - Sinus disorder [Not Recovered/Not Resolved]
  - Malaise [Unknown]
  - Lower respiratory tract infection [Recovering/Resolving]
  - Pneumonia [Recovering/Resolving]
  - Fall [Recovering/Resolving]
  - Loss of consciousness [Recovering/Resolving]
